FAERS Safety Report 16173604 (Version 2)
Quarter: 2019Q2

REPORT INFORMATION
  Report Type: Spontaneous
  Country: FR (occurrence: FR)
  Receive Date: 20190409
  Receipt Date: 20190529
  Transmission Date: 20190711
  Serious: Yes (Other)
  Sender: FDA-Public Use
  Company Number: FR-ASTRAZENECA-2019SE54030

PATIENT
  Age: 23446 Day
  Sex: Female

DRUGS (2)
  1. LYNPARZA [Suspect]
     Active Substance: OLAPARIB
     Indication: OVARIAN CANCER
     Route: 048
     Dates: start: 20181231
  2. DOLIPRANE [Concomitant]
     Active Substance: ACETAMINOPHEN

REACTIONS (5)
  - Lumbar vertebral fracture [Recovered/Resolved]
  - Fall [Unknown]
  - Fatigue [Not Recovered/Not Resolved]
  - Intervertebral disc disorder [Recovered/Resolved]
  - Spinal pain [Recovering/Resolving]

NARRATIVE: CASE EVENT DATE: 20190327
